FAERS Safety Report 8350138-1 (Version None)
Quarter: 2012Q2

REPORT INFORMATION
  Report Type: 
  Country: None (occurrence: None)
  Receive Date: 20120510
  Receipt Date: 20120503
  Transmission Date: 20120825
  Serious: Yes (Hospitalization)
  Sender: FDA-Public Use
  Company Number: US-BAYER-2012-006937

PATIENT
  Age: 40 Year
  Sex: Female
  Weight: 48.073 kg

DRUGS (5)
  1. ALPHAGAN [Concomitant]
  2. BACLOFEN [Concomitant]
  3. DIAZEPAM [Concomitant]
  4. AMOXICILLIN [Concomitant]
  5. YASMIN [Suspect]
     Indication: CONTRACEPTION
     Dosage: UNK
     Dates: start: 20040720, end: 20070701

REACTIONS (2)
  - EMOTIONAL DISTRESS [None]
  - PULMONARY EMBOLISM [None]
